FAERS Safety Report 22114661 (Version 2)
Quarter: 2023Q1

REPORT INFORMATION
  Report Type: Spontaneous
  Country: GB (occurrence: GB)
  Receive Date: 20230320
  Receipt Date: 20230327
  Transmission Date: 20230418
  Serious: Yes (Hospitalization)
  Sender: FDA-Public Use
  Company Number: GB-CELLTRION INC.-2023GB001302

PATIENT

DRUGS (9)
  1. LENALIDOMIDE [Suspect]
     Active Substance: LENALIDOMIDE
     Indication: Extranodal marginal zone B-cell lymphoma (MALT type)
     Dosage: 20 MILLIGRAM (20 MILLIGRAM, DAILY DAYS 1 TO 21 OF EACH 28-DAY CYCLE FOR CYCLES 1 TO 12)
     Route: 048
     Dates: start: 20220607, end: 20220727
  2. LENALIDOMIDE [Suspect]
     Active Substance: LENALIDOMIDE
     Dosage: UNK
     Route: 048
     Dates: start: 20220811
  3. RITUXIMAB [Suspect]
     Active Substance: RITUXIMAB
     Indication: Extranodal marginal zone B-cell lymphoma (MALT type)
     Dosage: 375 MILLIGRAM/SQ. METER (375 MG/M2 (700 MG) (WEEKLY FOR CYCLE 1 THEN DAY 1 OF CYCLES 2 TO 5)
     Route: 042
     Dates: start: 20220608
  4. RITUXIMAB [Suspect]
     Active Substance: RITUXIMAB
     Dosage: 700 MILLIGRAM (700 MILLIGRAM, MONTHLY (LAST DOSE BEFORE SAE: 08SEP2022)
     Route: 042
     Dates: start: 20220608
  5. RITUXIMAB [Suspect]
     Active Substance: RITUXIMAB
     Dosage: 375 MILLIGRAM/SQ. METER (375 MG/M2 (700 MG) (WEEKLY FOR CYCLE 1 THEN DAY 1 OF CYCLES 2 TO 5)
     Route: 042
     Dates: start: 20220714
  6. TAFASITAMAB [Suspect]
     Active Substance: TAFASITAMAB
     Indication: Extranodal marginal zone B-cell lymphoma (MALT type)
     Dosage: 12 MILLIGRAM/KILOGRAM (12 MG/KG (924 MG) (WEEKLY FOR CYCLES 1 TO 3, THEN ON DAYS 1 AND 15 FOR CYCLES
     Route: 042
     Dates: start: 20220607, end: 20220727
  7. TAFASITAMAB [Suspect]
     Active Substance: TAFASITAMAB
     Dosage: 12 MILLIGRAM/KILOGRAM (12 MG/KG (924 MG) (WEEKLY FOR CYCLES 1 TO 3, THEN ON DAYS 1 AND 15 FOR CYCLES
     Route: 042
     Dates: start: 20220804
  8. CARBOCYSTEINE [Concomitant]
     Active Substance: CARBOCYSTEINE
     Indication: Product used for unknown indication
     Dosage: UNK
     Route: 065
     Dates: start: 2004
  9. TIOTROPIUM BROMIDE [Concomitant]
     Active Substance: TIOTROPIUM BROMIDE
     Indication: Product used for unknown indication
     Dosage: UNK
     Route: 065
     Dates: start: 2004

REACTIONS (3)
  - Anaemia [Recovered/Resolved]
  - Influenza [Recovered/Resolved]
  - Off label use [Unknown]

NARRATIVE: CASE EVENT DATE: 20220721
